FAERS Safety Report 10166807 (Version 1)
Quarter: 2014Q2

REPORT INFORMATION
  Report Type: Spontaneous
  Country: US (occurrence: US)
  Receive Date: 20140512
  Receipt Date: 20140512
  Transmission Date: 20141212
  Serious: Yes (Hospitalization)
  Sender: FDA-Public Use
  Company Number: US-009507513-1404USA015656

PATIENT
  Sex: Female
  Weight: 63.49 kg

DRUGS (4)
  1. FOSAMAX [Suspect]
     Indication: OSTEOPENIA
     Dosage: 70 MG, QW
     Route: 048
     Dates: start: 20001122
  2. CALTRATE (CALCIUM CARBONATE) [Concomitant]
     Indication: OSTEOPENIA
  3. CALCIUM (UNSPECIFIED) [Concomitant]
     Indication: OSTEOPENIA
     Dosage: 1500 QD
     Dates: start: 20001122
  4. VIACTIV SOFT CALCIUM CHEWS [Concomitant]
     Indication: OSTEOPENIA
     Dosage: UNK
     Dates: start: 20001122

REACTIONS (4)
  - Gallbladder disorder [Unknown]
  - Arthritis [Unknown]
  - Blood cholesterol increased [Unknown]
  - Pain in extremity [Unknown]
